FAERS Safety Report 8902997 (Version 1)
Quarter: 2012Q4

REPORT INFORMATION
  Report Type: 
  Country: DE (occurrence: DE)
  Receive Date: 20121113
  Receipt Date: 20121113
  Transmission Date: 20130627
  Serious: Yes (Other)
  Sender: FDA-Public Use
  Company Number: PHHY2012DE104227

PATIENT
  Sex: Female

DRUGS (4)
  1. CICLOSPORIN [Suspect]
     Route: 064
  2. TACROLIMUS [Suspect]
     Route: 064
  3. MYCOPHENOLATE MOFETIL [Suspect]
     Route: 064
  4. AZATHIOPRINE [Suspect]
     Route: 064

REACTIONS (2)
  - Low birth weight baby [Unknown]
  - Foetal exposure during pregnancy [Unknown]
